FAERS Safety Report 11288851 (Version 1)
Quarter: 2015Q3

REPORT INFORMATION
  Report Type: Spontaneous
  Country: US (occurrence: US)
  Receive Date: 20150721
  Receipt Date: 20150721
  Transmission Date: 20151125
  Serious: No
  Sender: FDA-Public Use
  Company Number: US-UNITED THERAPEUTICS-UNT-2015-004552

PATIENT
  Sex: Female
  Weight: 90.25 kg

DRUGS (3)
  1. REMODULIN [Suspect]
     Active Substance: TREPROSTINIL
     Indication: PULMONARY ARTERIAL HYPERTENSION
     Dosage: 0.015 ?G/KG/MIN, CONTINUING
     Route: 058
     Dates: start: 20140305
  2. REVATIO [Concomitant]
     Active Substance: SILDENAFIL CITRATE
     Indication: PRODUCT USED FOR UNKNOWN INDICATION
  3. REMODULIN [Suspect]
     Active Substance: TREPROSTINIL
     Dosage: 0.015 ?G/KG/MIN, CONTINUING
     Route: 058
     Dates: start: 20140305

REACTIONS (5)
  - Dyspnoea exertional [Not Recovered/Not Resolved]
  - Respiratory tract congestion [Unknown]
  - Chest discomfort [Not Recovered/Not Resolved]
  - Migraine [Unknown]
  - Chest pain [Not Recovered/Not Resolved]
